FAERS Safety Report 4413818-6 (Version None)
Quarter: 2004Q3

REPORT INFORMATION
  Report Type: 
  Country: None (occurrence: None)
  Receive Date: 20040728
  Receipt Date: 20040712
  Transmission Date: 20050211
  Serious: Yes (Death)
  Sender: FDA-Public Use
  Company Number: A03200402268

PATIENT

DRUGS (1)
  1. AMBIEN [Suspect]

REACTIONS (2)
  - FALL [None]
  - POLYTRAUMATISM [None]
